FAERS Safety Report 4505768-1 (Version None)
Quarter: 2004Q4

REPORT INFORMATION
  Report Type: 
  Country: None (occurrence: None)
  Receive Date: 20041119
  Receipt Date: 20041116
  Transmission Date: 20050328
  Serious: Yes (Hospitalization)
  Sender: FDA-Public Use
  Company Number: F01200403484

PATIENT
  Age: 75 Year
  Sex: Female

DRUGS (4)
  1. FONDAPARINUX SODIUM [Suspect]
     Indication: ORTHOPEDIC PROCEDURE
     Dosage: 2.5MG PER DAY
     Route: 058
     Dates: start: 20040723, end: 20040802
  2. CEFAMANDOLE NAFATE [Concomitant]
  3. ALLOPURINOL [Concomitant]
  4. AMLODIPINE BESYLATE [Concomitant]

REACTIONS (1)
  - HEPATIC ENZYME INCREASED [None]
